FAERS Safety Report 12795203 (Version 1)
Quarter: 2016Q3

REPORT INFORMATION
  Report Type: Spontaneous
  Country: US (occurrence: US)
  Receive Date: 20160929
  Receipt Date: 20160929
  Transmission Date: 20161109
  Serious: Yes (Other)
  Sender: FDA-Public Use
  Company Number: US-PFIZER INC-2016445264

PATIENT
  Age: 51 Year
  Sex: Female

DRUGS (3)
  1. SYNTHROID [Concomitant]
     Active Substance: LEVOTHYROXINE SODIUM
     Dosage: 100 MCG DAILY
     Route: 048
     Dates: start: 201412
  2. VANCOMYCIN HCL [Suspect]
     Active Substance: VANCOMYCIN HYDROCHLORIDE
     Indication: EYE INFLAMMATION
     Dosage: 500 MG, 2X/DAY (Q12 HR)
     Route: 042
     Dates: start: 201412
  3. CIPRO [Concomitant]
     Active Substance: CIPROFLOXACIN HYDROCHLORIDE
     Dosage: 500 MG, 2X/DAY
     Route: 048
     Dates: start: 201412

REACTIONS (7)
  - Fall [Unknown]
  - Balance disorder [Unknown]
  - Activities of daily living impaired [Unknown]
  - Fracture [Unknown]
  - Ototoxicity [Unknown]
  - Inner ear disorder [Unknown]
  - Mobility decreased [Unknown]
